FAERS Safety Report 8174212-8 (Version None)
Quarter: 2012Q1

REPORT INFORMATION
  Report Type: 
  Country: None (occurrence: None)
  Receive Date: 20120224
  Receipt Date: 20120207
  Transmission Date: 20120608
  Serious: Yes (Other)
  Sender: FDA-Public Use
  Company Number: FK201200369

PATIENT
  Age: 54 Year
  Sex: Male

DRUGS (2)
  1. CISPLATIN [Suspect]
     Indication: OESOPHAGEAL CARCINOMA
     Dosage: 80 MG/M2
  2. ETOPOSIDE [Suspect]
     Indication: OESOPHAGEAL CARCINOMA
     Dosage: 100 MG/M2, INTRAVENOUS (NOT OTHERWISE SPECIFIED)
     Route: 042

REACTIONS (8)
  - NEPHROGENIC ANAEMIA [None]
  - NAUSEA [None]
  - TOXICITY TO VARIOUS AGENTS [None]
  - DECREASED APPETITE [None]
  - NEUTROPENIA [None]
  - NEOPLASM PROGRESSION [None]
  - OESOPHAGEAL CARCINOMA [None]
  - CONDITION AGGRAVATED [None]
